FAERS Safety Report 6655426-2 (Version None)
Quarter: 2010Q1

REPORT INFORMATION
  Report Type: 
  Country: None (occurrence: None)
  Receive Date: 20100329
  Receipt Date: 20100225
  Transmission Date: 20100710
  Serious: No
  Sender: FDA-Public Use
  Company Number: US-BAYER-201012629BCC

PATIENT
  Age: 55 Year
  Sex: Female
  Weight: 59 kg

DRUGS (8)
  1. ALEVE (CAPLET) [Suspect]
     Indication: WRIST FRACTURE
     Dosage: UNIT DOSE: 220 MG
     Route: 048
     Dates: start: 20100201
  2. OXYCODONE HCL [Concomitant]
     Route: 065
  3. LEVOTHYROXINE SODIUM [Concomitant]
     Route: 065
  4. LISINOPRIL [Concomitant]
     Route: 065
  5. VITAMIN D [Concomitant]
     Route: 065
  6. CALCIUM [Concomitant]
     Route: 065
  7. NIACIN [Concomitant]
     Route: 065
  8. COD LIVER OIL [Concomitant]
     Route: 065

REACTIONS (1)
  - HUNGER [None]
